FAERS Safety Report 4641215-7 (Version None)
Quarter: 2005Q2

REPORT INFORMATION
  Report Type: 
  Country: None (occurrence: None)
  Receive Date: 20050420
  Receipt Date: 20050420
  Transmission Date: 20051028
  Serious: Yes (Hospitalization)
  Sender: FDA-Public Use
  Company Number: None

PATIENT
  Age: 23 Year
  Sex: Female
  Weight: 116.5744 kg

DRUGS (1)
  1. TUBERCULIN PPD [Suspect]
     Indication: TUBERCULIN TEST
     Dosage: .01 ML INTRADERMAL
     Route: 023

REACTIONS (1)
  - DRUG HYPERSENSITIVITY [None]
